FAERS Safety Report 7709340-1 (Version None)
Quarter: 2011Q3

REPORT INFORMATION
  Report Type: 
  Country: None (occurrence: None)
  Receive Date: 20110825
  Receipt Date: 20110818
  Transmission Date: 20111222
  Serious: Yes (Other)
  Sender: FDA-Public Use
  Company Number: US-BAYER-200938849NA

PATIENT
  Age: 21 Year
  Sex: Female

DRUGS (2)
  1. NEXIUM [Concomitant]
     Dosage: UNK UNK, QD
     Dates: end: 20080410
  2. YAZ [Suspect]
     Dates: start: 20070801, end: 20090501

REACTIONS (5)
  - CHOLECYSTITIS CHRONIC [None]
  - NEPHROLITHIASIS [None]
  - PANCREATITIS [None]
  - BILIARY DYSKINESIA [None]
  - CHOLECYSTECTOMY [None]
